FAERS Safety Report 5532900-3 (Version None)
Quarter: 2007Q4

REPORT INFORMATION
  Report Type: 
  Country: None (occurrence: None)
  Receive Date: 20071119
  Receipt Date: 20071004
  Transmission Date: 20080405
  Serious: No
  Sender: FDA-Public Use
  Company Number: TPA2007A02047

PATIENT
  Age: 77 Year
  Sex: Female
  Weight: 62.5964 kg

DRUGS (4)
  1. ROZEREM [Suspect]
     Indication: INSOMNIA
     Dosage: 8 MG, QHS, PER ORAL
     Route: 048
     Dates: start: 20071003
  2. CARDIZEM [Concomitant]
  3. LIPITOR [Concomitant]
  4. QUINAPRIL HCL [Concomitant]

REACTIONS (3)
  - DRUG INEFFECTIVE [None]
  - POOR QUALITY SLEEP [None]
  - RESTLESSNESS [None]
